FAERS Safety Report 17605735 (Version 1)
Quarter: 2020Q1

REPORT INFORMATION
  Report Type: Spontaneous
  Country: US (occurrence: US)
  Receive Date: 20200331
  Receipt Date: 20200331
  Transmission Date: 20200409
  Serious: No
  Sender: FDA-Public Use
  Company Number: NVSC2020US088778

PATIENT
  Age: 30 Year
  Sex: Female

DRUGS (1)
  1. SIGNIFOR LAR [Suspect]
     Active Substance: PASIREOTIDE PAMOATE
     Indication: PITUITARY TUMOUR BENIGN
     Dosage: 40 MG, QMO
     Route: 030

REACTIONS (4)
  - Hyperhidrosis [Unknown]
  - Product use in unapproved indication [Unknown]
  - Nausea [Unknown]
  - Cold sweat [Unknown]
